FAERS Safety Report 7592308-6 (Version None)
Quarter: 2011Q3

REPORT INFORMATION
  Report Type: 
  Country: None (occurrence: None)
  Receive Date: 20110706
  Receipt Date: 20110630
  Transmission Date: 20111222
  Serious: Yes (Death, Hospitalization)
  Sender: FDA-Public Use
  Company Number: JP-BRISTOL-MYERS SQUIBB COMPANY-15156383

PATIENT
  Age: 73 Year
  Sex: Male
  Weight: 68 kg

DRUGS (3)
  1. XELODA [Suspect]
     Indication: GASTROOESOPHAGEAL CANCER
     Dosage: TABS;DAY 1-15. RECENT DOSE 01JUN2010 INTERRUPTED ON 01JUN10
     Route: 048
     Dates: start: 20100518, end: 20100601
  2. CETUXIMAB [Suspect]
     Indication: GASTROOESOPHAGEAL CANCER
     Dosage: 5 MG/ML; NO OF INF:4(TOTAL)
     Route: 042
     Dates: start: 20100518, end: 20100609
  3. CISPLATIN [Suspect]
     Indication: GASTROOESOPHAGEAL CANCER
     Dosage: DAY 1 OF CYCLE, RECENT INF 18MAY2010 INTERRUPTED ON 18MAY10
     Route: 042
     Dates: start: 20100518, end: 20100518

REACTIONS (1)
  - DEVICE RELATED INFECTION [None]
